FAERS Safety Report 18178754 (Version 2)
Quarter: 2021Q1

REPORT INFORMATION
  Report Type: Report from Study
  Country: BR (occurrence: BR)
  Receive Date: 20200820
  Receipt Date: 20210216
  Transmission Date: 20210419
  Serious: Yes (Hospitalization, Other)
  Sender: FDA-Public Use
  Company Number: BR-JNJFOC-20200818170

PATIENT
  Age: 66 Year
  Sex: Female
  Weight: 79 kg

DRUGS (14)
  1. OHDE [Concomitant]
  2. CARDIO Q [Concomitant]
  3. ALENIA [ESOMEPRAZOLE MAGNESIUM] [Concomitant]
     Active Substance: ESOMEPRAZOLE MAGNESIUM
  4. SIMPONI [Suspect]
     Active Substance: GOLIMUMAB
     Indication: RHEUMATOID ARTHRITIS
     Route: 058
     Dates: start: 20200226, end: 20200628
  5. MAGNE B6 [Concomitant]
     Active Substance: MAGNESIUM\PYRIDOXINE
  6. LEFLUNOMIDE. [Concomitant]
     Active Substance: LEFLUNOMIDE
  7. MANIDIPINE HYDROCHLORIDE [Concomitant]
     Active Substance: MANIDIPINE HYDROCHLORIDE
  8. AZOR [Concomitant]
     Active Substance: AMLODIPINE BESYLATE\OLMESARTAN MEDOXOMIL
  9. ESTREVA [Concomitant]
     Active Substance: ESTRADIOL
  10. DAXAS [Concomitant]
     Active Substance: ROFLUMILAST
  11. SOMALGIN [Concomitant]
     Active Substance: ASPIRIN\DIHYDROXYALUMINUM AMINOACETATE ANHYDROUS\MAGNESIUM CARBONATE
     Route: 065
  12. NESINA [Concomitant]
     Active Substance: ALOGLIPTIN BENZOATE
  13. ROSUCOR [Concomitant]
     Active Substance: ROSUVASTATIN CALCIUM
     Route: 065
  14. BISOPROLOL FUMARATE. [Concomitant]
     Active Substance: BISOPROLOL FUMARATE

REACTIONS (4)
  - Cellulitis [Recovered/Resolved]
  - Oxygen saturation decreased [Not Recovered/Not Resolved]
  - Arthropathy [Recovered/Resolved]
  - COVID-19 [Unknown]

NARRATIVE: CASE EVENT DATE: 2020
